FAERS Safety Report 7655335-6 (Version None)
Quarter: 2011Q3

REPORT INFORMATION
  Report Type: 
  Country: None (occurrence: None)
  Receive Date: 20110804
  Receipt Date: 20110720
  Transmission Date: 20111222
  Serious: Yes (Hospitalization, Other)
  Sender: FDA-Public Use
  Company Number: US-ELI_LILLY_AND_COMPANY-US201007001701

PATIENT
  Sex: Male

DRUGS (16)
  1. FORTEO [Suspect]
     Dosage: 20 UG, DAILY (1/D)
     Route: 058
  2. FORTEO [Suspect]
     Dosage: 20 UG, DAILY (1/D)
     Route: 058
  3. TAMSULOSIN HCL [Concomitant]
     Indication: PROSTATE TENDERNESS
     Dosage: 0.4 MG, QD
  4. VITAMIN D [Concomitant]
     Dosage: UNK, UNKNOWN
     Route: 065
  5. VITAMIN B COMPLEX CAP [Concomitant]
     Dosage: UNK, QD
     Route: 065
  6. ASPIRIN [Concomitant]
     Indication: CARDIAC DISORDER
     Dosage: 81 MG, QD
     Route: 065
  7. FORTEO [Suspect]
     Indication: OSTEOPOROSIS
     Dosage: 20 UG, DAILY (1/D)
     Route: 058
  8. CARBIDOPA + LEVODOPA [Concomitant]
  9. CLONAZEPAM [Concomitant]
     Indication: INSOMNIA
     Dosage: 1 MG, QD
     Route: 065
  10. STOOL SOFTENER [Concomitant]
     Indication: BOWEL MOVEMENT IRREGULARITY
     Dosage: 100 MG, QD
  11. POTASSIUM [Concomitant]
     Dosage: 100 MG, QD (2 CAPSULES ONCE DAILY)
     Route: 065
  12. FORTEO [Suspect]
     Dosage: 20 UG, DAILY (1/D)
     Route: 058
     Dates: start: 20100630
  13. VITAMINS NOS [Concomitant]
  14. CALCIUM ACETATE [Concomitant]
     Indication: BONE DISORDER
     Dosage: UNK, UNKNOWN
     Route: 065
  15. PROSTAT [Concomitant]
     Dosage: 320 MG, QD
     Route: 065
  16. ASCORBIC ACID [Concomitant]
     Dosage: 500 MG, ONCE EVERY TWO DAYS
     Route: 065

REACTIONS (11)
  - HOSPITALISATION [None]
  - FUNCTIONAL GASTROINTESTINAL DISORDER [None]
  - MALAISE [None]
  - ASTHENIA [None]
  - CONSTIPATION [None]
  - BLADDER CANCER [None]
  - EATING DISORDER [None]
  - ILL-DEFINED DISORDER [None]
  - BOWEL MOVEMENT IRREGULARITY [None]
  - WEIGHT DECREASED [None]
  - PARKINSON'S DISEASE [None]
